FAERS Safety Report 4381541-2 (Version None)
Quarter: 2004Q2

REPORT INFORMATION
  Report Type: 
  Country: None (occurrence: None)
  Receive Date: 20040616
  Receipt Date: 20040607
  Transmission Date: 20050107
  Serious: Yes (Death, Hospitalization, Other)
  Sender: FDA-Public Use
  Company Number: 2004018129

PATIENT
  Age: 77 Year
  Sex: Female

DRUGS (11)
  1. LIPITOR [Suspect]
     Indication: DYSLIPIDAEMIA
     Dosage: 80 MG, (80 MG, 1 IN 1 D), ORAL
     Route: 048
     Dates: start: 20011109, end: 20040106
  2. EZETIMIBE [Suspect]
     Indication: ILL-DEFINED DISORDER
     Dosage: 10 MG (10 MG, 1 IN 1 D), ORAL
     Route: 048
     Dates: start: 20030902, end: 20040106
  3. LISINOPRIL [Concomitant]
  4. METOPROLOL SUCCINATE [Concomitant]
  5. NITROFURANTOIN [Concomitant]
  6. AMITRIPTYLINE HCL [Concomitant]
  7. OXYBUTYNIN HYDROCHLORIDE [Concomitant]
  8. LEVOTHYROXINE SODIUM [Concomitant]
  9. ASPIRIN [Concomitant]
  10. CALCIUM D3 ^STADA^ (CALCIUM COLECALCIFEROL) [Concomitant]
  11. TOCOPHEROL CONCENTRATE CAP [Concomitant]

REACTIONS (5)
  - ALANINE AMINOTRANSFERASE INCREASED [None]
  - ASPARTATE AMINOTRANSFERASE INCREASED [None]
  - GAMMA-GLUTAMYLTRANSFERASE INCREASED [None]
  - JAUNDICE [None]
  - LOW DENSITY LIPOPROTEIN INCREASED [None]
